FAERS Safety Report 4323532-3 (Version None)
Quarter: 2004Q1

REPORT INFORMATION
  Report Type: 
  Country: None (occurrence: None)
  Receive Date: 20040322
  Receipt Date: 20040312
  Transmission Date: 20041129
  Serious: Yes (Death, Hospitalization)
  Sender: FDA-Public Use
  Company Number: STA-AE-03-MTX-175

PATIENT
  Age: 73 Year
  Sex: Female

DRUGS (6)
  1. RHEUMATREX [Suspect]
     Indication: RHEUMATOID ARTHRITIS
     Dosage: 6 MG 1X PER 1 WK/ORAL
     Route: 048
     Dates: start: 19990818, end: 20031023
  2. METHOTREXATE [Suspect]
     Indication: RHEUMATOID ARTHRITIS
     Dosage: 7.5 MG 1X PER 1 WK
     Dates: start: 19890130, end: 19990719
  3. LIPOVAS   BANYU (SIMVASTATIN) [Concomitant]
  4. DIDRONEL [Concomitant]
  5. PREDNISOLONE [Concomitant]
  6. RIMATIL (BUCILLAMINE) [Concomitant]

REACTIONS (8)
  - ACUTE LYMPHOCYTIC LEUKAEMIA [None]
  - ANAEMIA [None]
  - BLOOD PRESSURE SYSTOLIC INCREASED [None]
  - DIZZINESS [None]
  - FACIAL PALSY [None]
  - LEUKOPENIA [None]
  - NAUSEA [None]
  - STOMATITIS HAEMORRHAGIC [None]
